FAERS Safety Report 8838049 (Version 1)
Quarter: 2012Q4

REPORT INFORMATION
  Report Type: Report from Study
  Country: US (occurrence: US)
  Receive Date: 20121012
  Receipt Date: 20121012
  Transmission Date: 20130627
  Serious: Yes (Life-Threatening, Hospitalization)
  Sender: FDA-Public Use
  Company Number: US-JNJFOC-20121004859

PATIENT
  Age: 49 Year
  Sex: Female

DRUGS (2)
  1. NUCYNTA IR [Suspect]
     Indication: SLEEP DISORDER THERAPY
     Route: 065
  2. BENZODIAZEPINE [Suspect]
     Indication: PRODUCT USED FOR UNKNOWN INDICATION
     Route: 065

REACTIONS (8)
  - Coma [Recovered/Resolved]
  - Apnoea [Recovered/Resolved]
  - Overdose [Unknown]
  - Respiratory depression [Recovered/Resolved]
  - Acute lung injury [Unknown]
  - Poisoning [Unknown]
  - Bradycardia [Recovered/Resolved]
  - Sinus arrhythmia [Unknown]
